FAERS Safety Report 11486331 (Version 1)
Quarter: 2015Q3

REPORT INFORMATION
  Report Type: Spontaneous
  Country: CA (occurrence: CA)
  Receive Date: 20150910
  Receipt Date: 20150910
  Transmission Date: 20151125
  Serious: Yes (Other)
  Sender: FDA-Public Use
  Company Number: CA-ROCHE-1611680

PATIENT
  Sex: Female
  Weight: 65 kg

DRUGS (8)
  1. XOLAIR [Suspect]
     Active Substance: OMALIZUMAB
     Indication: CHRONIC SPONTANEOUS URTICARIA
     Route: 058
     Dates: start: 20121121
  2. PREDNISONE. [Concomitant]
     Active Substance: PREDNISONE
     Route: 065
  3. VENTOLIN [Concomitant]
     Active Substance: ALBUTEROL SULFATE
  4. SALINE [Concomitant]
     Active Substance: SODIUM CHLORIDE
  5. SINGULAIR [Concomitant]
     Active Substance: MONTELUKAST SODIUM
  6. XOLAIR [Suspect]
     Active Substance: OMALIZUMAB
     Indication: ASTHMA
     Route: 058
     Dates: start: 20120112
  7. CICLOSPORIN [Suspect]
     Active Substance: CYCLOSPORINE
     Indication: PRODUCT USED FOR UNKNOWN INDICATION
     Dosage: 6 WEEKS TREATMENT
     Route: 065
  8. FLOVENT [Concomitant]
     Active Substance: FLUTICASONE PROPIONATE

REACTIONS (10)
  - Mechanical urticaria [Not Recovered/Not Resolved]
  - Injection site reaction [Recovered/Resolved]
  - Upper respiratory tract infection [Unknown]
  - Respiratory disorder [Unknown]
  - Urticaria [Recovered/Resolved]
  - Angioedema [Unknown]
  - Multiple allergies [Unknown]
  - Basal cell carcinoma [Unknown]
  - Hirsutism [Unknown]
  - Eczema [Unknown]

NARRATIVE: CASE EVENT DATE: 2013
